FAERS Safety Report 4534794-1 (Version None)
Quarter: 2004Q4

REPORT INFORMATION
  Report Type: 
  Country: None (occurrence: None)
  Receive Date: 20041222
  Receipt Date: 20040311
  Transmission Date: 20050328
  Serious: No
  Sender: FDA-Public Use
  Company Number: US-BRISTOL-MYERS SQUIBB COMPANY-12531455

PATIENT
  Age: 50 Year
  Sex: Female
  Weight: 109 kg

DRUGS (5)
  1. PRAVACHOL [Suspect]
     Indication: BLOOD CHOLESTEROL INCREASED
     Dosage: THERAPY FROM: JUNE OR JULY 2003; DOSE INCREASED TO 40MG DAILY IN FEB-2004
     Route: 048
     Dates: start: 20030101
  2. TRILEPTAL [Concomitant]
  3. EXELON [Concomitant]
  4. TOPAMAX [Concomitant]
  5. SYNTHROID [Concomitant]

REACTIONS (7)
  - ABDOMINAL DISTENSION [None]
  - ABDOMINAL PAIN UPPER [None]
  - DIARRHOEA [None]
  - DYSPEPSIA [None]
  - ERYTHEMA [None]
  - FLATULENCE [None]
  - HYPERCHLORHYDRIA [None]
